FAERS Safety Report 9896059 (Version 2)
Quarter: 2014Q1

REPORT INFORMATION
  Report Type: Spontaneous
  Country: US (occurrence: US)
  Receive Date: 20140213
  Receipt Date: 20140213
  Transmission Date: 20141002
  Serious: Yes (Other)
  Sender: FDA-Public Use
  Company Number: US-BRISTOL-MYERS SQUIBB COMPANY-19026665

PATIENT
  Age: 78 Year
  Sex: Female

DRUGS (3)
  1. ORENCIA [Suspect]
     Indication: RHEUMATOID ARTHRITIS
     Route: 042
     Dates: start: 20110104, end: 20121121
  2. METHOTREXATE [Concomitant]
     Route: 048
  3. PREDNISONE [Concomitant]

REACTIONS (1)
  - Skin cancer [Recovering/Resolving]
